FAERS Safety Report 17719659 (Version 1)
Quarter: 2020Q2

REPORT INFORMATION
  Report Type: Spontaneous
  Country: US (occurrence: US)
  Receive Date: 20200428
  Receipt Date: 20200428
  Transmission Date: 20200714
  Serious: Yes (Other)
  Sender: FDA-Public Use
  Company Number: US-PURDUE PHARMA-USA-2020-0151359

PATIENT
  Sex: Male

DRUGS (1)
  1. OXYCODONE HYDROCHLORIDE (SIMILAR TO NDA 22-272) [Suspect]
     Active Substance: OXYCODONE HYDROCHLORIDE
     Indication: PRODUCT USED FOR UNKNOWN INDICATION
     Dosage: UNK
     Route: 048

REACTIONS (12)
  - Overdose [Unknown]
  - Tooth loss [Unknown]
  - Drug dependence [Unknown]
  - Hallucination [Unknown]
  - Eating disorder [Unknown]
  - Fatigue [Unknown]
  - Malaise [Unknown]
  - Sleep disorder [Unknown]
  - Anger [Unknown]
  - Performance status decreased [Unknown]
  - Depression [Unknown]
  - Irritability [Unknown]

NARRATIVE: CASE EVENT DATE: 20200212
